FAERS Safety Report 9046206 (Version 2)
Quarter: 2013Q2

REPORT INFORMATION
  Report Type: Spontaneous
  Country: BR (occurrence: BR)
  Receive Date: 20130201
  Receipt Date: 20130624
  Transmission Date: 20140414
  Serious: Yes (Other)
  Sender: FDA-Public Use
  Company Number: BR-BAYER-2013-008721

PATIENT
  Age: 39 Year
  Sex: Female
  Weight: 64 kg

DRUGS (4)
  1. MIRENA [Suspect]
     Indication: METRORRHAGIA
     Dosage: 20 ?G, CONT
     Route: 015
     Dates: start: 20111026
  2. MIRENA [Suspect]
     Indication: MENSTRUAL CYCLE MANAGEMENT
  3. MIRENA [Suspect]
     Indication: CONTRACEPTION
  4. PURAN T4 [Concomitant]
     Indication: HYPOTHYROIDISM
     Dosage: 1 DF, QD
     Route: 048
     Dates: start: 2012

REACTIONS (5)
  - Amenorrhoea [Not Recovered/Not Resolved]
  - Urinary tract infection [Recovered/Resolved]
  - Abdominal pain lower [Recovered/Resolved]
  - Nephrolithiasis [None]
  - Acne [Not Recovered/Not Resolved]
